FAERS Safety Report 25139733 (Version 1)
Quarter: 2025Q1

REPORT INFORMATION
  Report Type: Spontaneous
  Country: US (occurrence: US)
  Receive Date: 20250331
  Receipt Date: 20250331
  Transmission Date: 20250409
  Serious: Yes (Other)
  Sender: SANOFI AVENTIS
  Company Number: US-SA-2025SA090270

PATIENT
  Age: 66 Year
  Sex: Female

DRUGS (1)
  1. DUPIXENT [Suspect]
     Active Substance: DUPILUMAB
     Indication: Dermatitis atopic
     Dosage: 300 MG, QOW
     Route: 058

REACTIONS (11)
  - Chronic kidney disease [Unknown]
  - Abdominal pain upper [Unknown]
  - Hepatic steatosis [Unknown]
  - Eye operation [Unknown]
  - Knee arthroplasty [Unknown]
  - Injection site reaction [Unknown]
  - Urticaria [Unknown]
  - Injection site erythema [Unknown]
  - Injection site swelling [Recovered/Resolved]
  - Injection site bruising [Unknown]
  - Arthralgia [Unknown]
